FAERS Safety Report 24371860 (Version 2)
Quarter: 2024Q4

REPORT INFORMATION
  Report Type: Spontaneous
  Country: US (occurrence: US)
  Receive Date: 20240927
  Receipt Date: 20241020
  Transmission Date: 20250115
  Serious: Yes (Other)
  Sender: BAYER HEALTHCARE LLC
  Company Number: US-BAYER-2024A137971

PATIENT
  Age: 74 Year
  Sex: Female

DRUGS (10)
  1. CORICIDIN HBP MAXIMUM STRENGTH COLD, COUGH AND FLU [Suspect]
     Active Substance: ACETAMINOPHEN\DEXTROMETHORPHAN HYDROBROMIDE\GUAIFENESIN
     Indication: Hypersensitivity
     Dosage: 30 ML, ONCE
     Route: 048
  2. CORICIDIN HBP MAXIMUM STRENGTH COLD, COUGH AND FLU [Suspect]
     Active Substance: ACETAMINOPHEN\DEXTROMETHORPHAN HYDROBROMIDE\GUAIFENESIN
     Indication: Nasopharyngitis
  3. PREDNISONE [Concomitant]
     Active Substance: PREDNISONE
  4. ZOLPIDEM [Concomitant]
     Active Substance: ZOLPIDEM TARTRATE
  5. LUBIPROSTONE [Concomitant]
     Active Substance: LUBIPROSTONE
     Dosage: 8 UNK
  6. ROSUVASTATIN [Concomitant]
     Active Substance: ROSUVASTATIN
     Dosage: 40 MG
  7. ALLEGRA [Concomitant]
     Active Substance: FEXOFENADINE HYDROCHLORIDE
     Dosage: 60 MG
  8. TRETINOIN [Concomitant]
     Active Substance: TRETINOIN
     Dosage: TOPICAL
  9. GEMTESA [Concomitant]
     Active Substance: VIBEGRON
     Dosage: 75 MG
  10. BENADRYL [Concomitant]
     Active Substance: DIPHENHYDRAMINE HYDROCHLORIDE

REACTIONS (3)
  - Hallucination [Recovered/Resolved]
  - Heart rate increased [Recovering/Resolving]
  - Respiratory tract infection [None]
